FAERS Safety Report 6772941-1 (Version None)
Quarter: 2010Q2

REPORT INFORMATION
  Report Type: 
  Country: None (occurrence: None)
  Receive Date: 20100616
  Receipt Date: 20100610
  Transmission Date: 20101027
  Serious: Yes (Other)
  Sender: FDA-Public Use
  Company Number: US-ELI_LILLY_AND_COMPANY-US201006003107

PATIENT
  Sex: Female

DRUGS (2)
  1. HUMULIN N [Suspect]
     Indication: GESTATIONAL DIABETES
  2. PRENATAL VITAMINS /01549301/ [Concomitant]

REACTIONS (2)
  - BLADDER PERFORATION [None]
  - DRUG EXPOSURE DURING PREGNANCY [None]
